FAERS Safety Report 7920858-9 (Version None)
Quarter: 2011Q4

REPORT INFORMATION
  Report Type: 
  Country: None (occurrence: None)
  Receive Date: 20111117
  Receipt Date: 20110817
  Transmission Date: 20120403
  Serious: No
  Sender: FDA-Public Use
  Company Number: US-GLAXOSMITHKLINE-A0942316A

PATIENT
  Age: 62 Year
  Sex: Male
  Weight: 118.2 kg

DRUGS (1)
  1. VOTRIENT [Suspect]
     Indication: MALIGNANT URINARY TRACT NEOPLASM
     Dosage: 600MG PER DAY
     Route: 048
     Dates: start: 20110422

REACTIONS (1)
  - DIARRHOEA [None]
